FAERS Safety Report 21103604 (Version 11)
Quarter: 2024Q4

REPORT INFORMATION
  Report Type: Report from Study
  Country: CA (occurrence: CA)
  Receive Date: 20220720
  Receipt Date: 20241108
  Transmission Date: 20250114
  Serious: Yes (Other)
  Sender: ROCHE
  Company Number: CA-ROCHE-2897894

PATIENT
  Age: 55 Year
  Sex: Female

DRUGS (9)
  1. OCREVUS [Suspect]
     Active Substance: OCRELIZUMAB
     Indication: Primary progressive multiple sclerosis
     Dosage: 300 MG AT DAY 0 AND 14, THEN 600 MG EVERY 6 MONTH
     Route: 042
     Dates: start: 20210806
  2. MELATONIN [Suspect]
     Active Substance: MELATONIN
     Indication: Sleep disorder
     Route: 065
  3. BENADRYL [Suspect]
     Active Substance: DIPHENHYDRAMINE HYDROCHLORIDE
     Indication: Product used for unknown indication
     Route: 065
  4. BACLOFEN [Concomitant]
     Active Substance: BACLOFEN
  5. RAPAFLO [Concomitant]
     Active Substance: SILODOSIN
  6. MAGNESIUM [Concomitant]
     Active Substance: MAGNESIUM
  7. EVENING PRIMROSE OIL\HERBALS [Concomitant]
     Active Substance: EVENING PRIMROSE OIL\HERBALS
  8. OMEGA 3 [Concomitant]
     Active Substance: CAPSAICIN
  9. PRAMIPEXOLE [Concomitant]
     Active Substance: PRAMIPEXOLE\PRAMIPEXOLE DIHYDROCHLORIDE

REACTIONS (36)
  - Infusion related reaction [Recovered/Resolved]
  - Insomnia [Recovered/Resolved]
  - Muscle spasms [Recovered/Resolved]
  - Breast discomfort [Not Recovered/Not Resolved]
  - Restless legs syndrome [Recovering/Resolving]
  - Fall [Unknown]
  - Hypoaesthesia [Not Recovered/Not Resolved]
  - Dizziness [Not Recovered/Not Resolved]
  - Calcinosis [Not Recovered/Not Resolved]
  - Peripheral coldness [Not Recovered/Not Resolved]
  - Contusion [Recovered/Resolved]
  - Dyspnoea [Recovered/Resolved]
  - Burning sensation [Recovered/Resolved]
  - Peripheral swelling [Recovered/Resolved]
  - Muscular weakness [Recovered/Resolved]
  - Insomnia [Recovered/Resolved]
  - Peripheral swelling [Recovered/Resolved]
  - Musculoskeletal stiffness [Not Recovered/Not Resolved]
  - Peripheral coldness [Not Recovered/Not Resolved]
  - Upper limb fracture [Unknown]
  - Balance disorder [Not Recovered/Not Resolved]
  - Bronchitis [Not Recovered/Not Resolved]
  - Influenza [Unknown]
  - Multiple sclerosis [Unknown]
  - Therapy non-responder [Unknown]
  - Illness [Unknown]
  - Malaise [Unknown]
  - Musculoskeletal stiffness [Unknown]
  - Feeling hot [Recovered/Resolved]
  - Sensory loss [Not Recovered/Not Resolved]
  - Ear pain [Not Recovered/Not Resolved]
  - Pain in jaw [Not Recovered/Not Resolved]
  - Ligament sprain [Not Recovered/Not Resolved]
  - Carpal tunnel syndrome [Recovering/Resolving]
  - Sneezing [Unknown]
  - Limb discomfort [Unknown]

NARRATIVE: CASE EVENT DATE: 20210806
